FAERS Safety Report 6223896-X (Version None)
Quarter: 2009Q2

REPORT INFORMATION
  Report Type: 
  Country: None (occurrence: None)
  Receive Date: 20090611
  Receipt Date: 20090604
  Transmission Date: 20091009
  Serious: Yes (Other)
  Sender: FDA-Public Use
  Company Number: US-JNJCH-2009015572

PATIENT
  Age: 66 Year
  Sex: Female
  Weight: 90.3 kg

DRUGS (3)
  1. LISTERINE TOTAL CARE ANTICAVITY MOUTHWASH [Suspect]
     Indication: DENTAL DISORDER PROPHYLAXIS
     Dosage: TEXT:1 CAPFULL ONCE A DAY
     Route: 048
  2. TEMAZEPAM [Concomitant]
     Indication: SLEEP DISORDER
     Route: 065
  3. GABAPENTIN [Concomitant]
     Indication: NEUROPATHY PERIPHERAL
     Route: 065

REACTIONS (2)
  - ORAL DISCOMFORT [None]
  - SURGERY [None]
